FAERS Safety Report 4874420-5 (Version None)
Quarter: 2005Q4

REPORT INFORMATION
  Report Type: 
  Country: None (occurrence: None)
  Receive Date: 20051201
  Receipt Date: 20050810
  Transmission Date: 20060501
  Serious: No
  Sender: FDA-Public Use
  Company Number: 2005PV001050

PATIENT
  Age: 62 Year
  Sex: Male
  Weight: 158.759 kg

DRUGS (17)
  1. BYETTA [Suspect]
     Indication: DIABETES MELLITUS NON-INSULIN-DEPENDENT
     Dosage: 10 MCG;BID;SC
     Route: 058
     Dates: start: 20050615
  2. ACTOS [Concomitant]
  3. TRICOR [Concomitant]
  4. ZETIA [Concomitant]
  5. SYNTHROID [Concomitant]
  6. TORSEMIDE [Concomitant]
  7. LISINOPRIL [Concomitant]
  8. METFORMIN HYDROCHLORIDE [Concomitant]
  9. ALLOPURINOL [Concomitant]
  10. NITROGLYCERIN [Concomitant]
  11. PREVACID [Concomitant]
  12. ISOSORBIDE [Concomitant]
  13. FLURAZEPAM [Concomitant]
  14. NABUMETONE [Concomitant]
  15. QUININE SULFATE [Concomitant]
  16. ARTHRITIS PAIN MEDICATION [Concomitant]
  17. ASPIRIN [Concomitant]

REACTIONS (4)
  - DECREASED APPETITE [None]
  - DYSGEUSIA [None]
  - MALAISE [None]
  - WEIGHT DECREASED [None]
